FAERS Safety Report 13586985 (Version 1)
Quarter: 2017Q2

REPORT INFORMATION
  Report Type: Spontaneous
  Country: US (occurrence: US)
  Receive Date: 20170526
  Receipt Date: 20170526
  Transmission Date: 20170830
  Serious: Yes (Hospitalization)
  Sender: FDA-Public Use
  Company Number: US-ROCHE-670564

PATIENT
  Age: 31 Year
  Sex: Male

DRUGS (17)
  1. NAPROSYN [Suspect]
     Active Substance: NAPROXEN
     Indication: PYREXIA
     Route: 065
  2. TS-1 [Suspect]
     Active Substance: GIMERACIL\OTERACIL\TEGAFUR
     Dosage: CYCLE 11
     Route: 048
     Dates: start: 20091104, end: 20091108
  3. PEGFILGRASTIM [Concomitant]
     Active Substance: PEGFILGRASTIM
     Indication: WHITE BLOOD CELL COUNT INCREASED
     Dosage: INDICATION REPORTED: INCREASE WHITE BLOOD CELL COUNT (POST CHEMOTHERAPY)
     Route: 065
     Dates: start: 20091105, end: 20091105
  4. UDDERLY SMOOTH [Concomitant]
     Indication: DRY SKIN
     Route: 065
  5. TS-1 [Suspect]
     Active Substance: GIMERACIL\OTERACIL\TEGAFUR
     Indication: CHOLANGIOCARCINOMA
     Route: 048
  6. VASELINE PURE [Concomitant]
     Active Substance: PETROLATUM
     Indication: DRY SKIN
     Route: 065
  7. DOCETAXEL. [Suspect]
     Active Substance: DOCETAXEL
     Indication: CHOLANGIOCARCINOMA
     Dosage: FORM: INJECTION; ROUTE REPORTED: INTRAVENOUS (NOT OTHERWISE SPECIFIED)
     Route: 042
  8. IMODIUM [Concomitant]
     Active Substance: LOPERAMIDE HYDROCHLORIDE
     Indication: DIARRHOEA
     Route: 065
  9. DEXAMETHASONE. [Concomitant]
     Active Substance: DEXAMETHASONE
     Indication: INFLAMMATION
     Dosage: PREMEDICATION PRIOR TO CHEMOTHERAPY
     Route: 065
  10. VITAMIN B6 [Concomitant]
     Active Substance: PYRIDOXINE HYDROCHLORIDE
     Indication: NUTRITIONAL SUPPLEMENTATION
     Route: 065
  11. OXYCODONE [Concomitant]
     Active Substance: OXYCODONE
     Indication: PAIN
     Dosage: ADDITIONAL INDICATION: HEADACHE
     Route: 065
  12. LOMOTIL [Concomitant]
     Active Substance: ATROPINE SULFATE\DIPHENOXYLATE HYDROCHLORIDE
     Indication: DIARRHOEA
     Route: 065
  13. AMBIEN [Concomitant]
     Active Substance: ZOLPIDEM TARTRATE
     Indication: SLEEP DISORDER
     Route: 065
  14. TRAMADOL. [Concomitant]
     Active Substance: TRAMADOL
     Indication: PAIN
     Route: 065
  15. LYRICA [Concomitant]
     Active Substance: PREGABALIN
     Indication: NEUROPATHY PERIPHERAL
     Route: 065
  16. DOCETAXEL. [Suspect]
     Active Substance: DOCETAXEL
     Dosage: CYCLE 11
     Route: 042
     Dates: start: 20091104, end: 20091104
  17. ESOMEPRAZOLE [Concomitant]
     Active Substance: ESOMEPRAZOLE
     Indication: GASTROOESOPHAGEAL REFLUX DISEASE
     Route: 065

REACTIONS (1)
  - Gastrointestinal haemorrhage [Not Recovered/Not Resolved]

NARRATIVE: CASE EVENT DATE: 20091109
